FAERS Safety Report 9002276 (Version 2)
Quarter: 2013Q2

REPORT INFORMATION
  Report Type: Report from Study
  Country: DE (occurrence: DE)
  Receive Date: 20130107
  Receipt Date: 20130630
  Transmission Date: 20140414
  Serious: Yes (Hospitalization)
  Sender: FDA-Public Use
  Company Number: DE-ABBOTT-12P-062-1009768-00

PATIENT
  Sex: Female

DRUGS (2)
  1. HUMIRA [Suspect]
     Indication: CROHN^S DISEASE
     Route: 058
     Dates: start: 20120704, end: 20121106
  2. HUMIRA [Suspect]
     Route: 058
     Dates: start: 20121107, end: 20121214

REACTIONS (2)
  - Gastrointestinal disorder [Recovering/Resolving]
  - Wound abscess [Recovering/Resolving]
